FAERS Safety Report 12191042 (Version 1)
Quarter: 2016Q1

REPORT INFORMATION
  Report Type: Spontaneous
  Country: US (occurrence: None)
  Receive Date: 20160317
  Receipt Date: 20160317
  Transmission Date: 20160526
  Serious: No
  Sender: FDA-Public Use
  Company Number: None

PATIENT
  Age: 76 Year
  Sex: Male
  Weight: 132.45 kg

DRUGS (1)
  1. TRADJENTA [Suspect]
     Active Substance: LINAGLIPTIN
     Indication: TYPE 2 DIABETES MELLITUS
     Route: 048
     Dates: start: 20160122, end: 20160210

REACTIONS (5)
  - Oropharyngeal pain [None]
  - Rash [None]
  - Arthralgia [None]
  - Hyperaesthesia [None]
  - Rash pustular [None]

NARRATIVE: CASE EVENT DATE: 20160210
